FAERS Safety Report 8919531 (Version 1)
Quarter: 2012Q4

REPORT INFORMATION
  Report Type: 
  Country: US (occurrence: US)
  Receive Date: 20121121
  Receipt Date: 20121121
  Transmission Date: 20130627
  Serious: Yes (Other)
  Sender: FDA-Public Use
  Company Number: US-TEVA-371294USA

PATIENT
  Age: 52 Year
  Sex: Male
  Weight: 90.8 kg

DRUGS (3)
  1. MELOXICAM [Suspect]
     Indication: MYALGIA
     Dates: start: 20121016
  2. MELOXICAM [Suspect]
     Indication: MUSCLE SPASMS
  3. AMLODIPINE [Suspect]
     Indication: HYPERTENSION
     Dosage: 10 Milligram Daily;
     Route: 048
     Dates: start: 20120322

REACTIONS (3)
  - Muscle rupture [Not Recovered/Not Resolved]
  - Joint swelling [Not Recovered/Not Resolved]
  - Drug ineffective [Unknown]
